FAERS Safety Report 5514684-8 (Version None)
Quarter: 2007Q4

REPORT INFORMATION
  Report Type: 
  Country: None (occurrence: None)
  Receive Date: 20071113
  Receipt Date: 20071102
  Transmission Date: 20080405
  Serious: No
  Sender: FDA-Public Use
  Company Number: US-BAXTER-2007BH008800

PATIENT
  Age: 6 Year
  Sex: Male

DRUGS (1)
  1. ADVATE [Suspect]
     Indication: PROPHYLAXIS
     Route: 042

REACTIONS (1)
  - HAEMARTHROSIS [None]
